FAERS Safety Report 4933403-7 (Version None)
Quarter: 2006Q1

REPORT INFORMATION
  Report Type: 
  Country: None (occurrence: None)
  Receive Date: 20060306
  Receipt Date: 20051017
  Transmission Date: 20060701
  Serious: Yes (Hospitalization)
  Sender: FDA-Public Use
  Company Number: US-MERCK-0510USA07810

PATIENT
  Age: 47 Year
  Sex: Male
  Weight: 130 kg

DRUGS (12)
  1. VIOXX [Suspect]
     Indication: BACK DISORDER
     Route: 048
     Dates: start: 20010104, end: 20041020
  2. VIOXX [Suspect]
     Route: 048
     Dates: start: 20010104, end: 20021020
  3. VIOXX [Suspect]
     Indication: PAIN MANAGEMENT
     Route: 048
     Dates: start: 20010104, end: 20041020
  4. VIOXX [Suspect]
     Route: 048
     Dates: start: 20010104, end: 20021020
  5. TALWIN [Concomitant]
     Route: 065
  6. VALIUM [Concomitant]
     Route: 065
  7. ULTRAM [Concomitant]
     Route: 065
  8. DURICEF [Concomitant]
     Route: 065
  9. METHOCARBAMOL [Concomitant]
     Route: 065
  10. METHYLPREDNISOLONE [Concomitant]
     Route: 065
  11. HYDROCODONE BITARTRATE [Concomitant]
     Route: 065
  12. FAMVIR [Concomitant]
     Route: 065

REACTIONS (7)
  - BLOOD GLUCOSE INCREASED [None]
  - CORONARY ARTERY DISEASE [None]
  - GASTROOESOPHAGEAL REFLUX DISEASE [None]
  - HYPERCHOLESTEROLAEMIA [None]
  - HYPERTENSION [None]
  - MUSCLE INJURY [None]
  - MYOCARDIAL INFARCTION [None]
